FAERS Safety Report 11424395 (Version 1)
Quarter: 2015Q3

REPORT INFORMATION
  Report Type: Report from Study
  Country: FI (occurrence: FI)
  Receive Date: 20150827
  Receipt Date: 20150827
  Transmission Date: 20151125
  Serious: Yes (Other)
  Sender: FDA-Public Use
  Company Number: FI-BAYER-2015-406163

PATIENT
  Sex: Female

DRUGS (1)
  1. LEVONORGESTREL CONTAINING INTRAUTERINE SYSTEM [Suspect]
     Active Substance: LEVONORGESTREL
     Indication: CONTRACEPTION
     Route: 015

REACTIONS (4)
  - Genital infection [None]
  - Genital haemorrhage [None]
  - Retained products of conception [None]
  - Device expulsion [None]
